FAERS Safety Report 24461975 (Version 1)
Quarter: 2024Q4

REPORT INFORMATION
  Report Type: Spontaneous
  Country: US (occurrence: None)
  Receive Date: 20241018
  Receipt Date: 20241018
  Transmission Date: 20250115
  Serious: Yes (Other)
  Sender: Public
  Company Number: None

PATIENT
  Age: 37 Year
  Sex: Female
  Weight: 61.2 kg

DRUGS (7)
  1. SUBUTEX [Suspect]
     Active Substance: BUPRENORPHINE HYDROCHLORIDE
     Indication: Drug use disorder
     Dosage: OTHER QUANTITY : 1 TABLET(S);?FREQUENCY : 3 TIMES A DAY;?
     Route: 060
     Dates: start: 20240816
  2. Subutex/buprenorphine [Concomitant]
  3. SUMATRIPTAN [Concomitant]
  4. TRAZODONE [Concomitant]
  5. HYDROXYZINE [Concomitant]
  6. Zofran [Concomitant]
  7. EXCEDRIN TENSION HEADACHE [Concomitant]

REACTIONS (3)
  - Gingival bleeding [None]
  - Tooth fracture [None]
  - Hypophagia [None]

NARRATIVE: CASE EVENT DATE: 20240912
